FAERS Safety Report 15058645 (Version 1)
Quarter: 2018Q2

REPORT INFORMATION
  Report Type: Report from Study
  Country: US (occurrence: US)
  Receive Date: 20180625
  Receipt Date: 20180625
  Transmission Date: 20180711
  Serious: Yes (Hospitalization, Other)
  Sender: FDA-Public Use
  Company Number: US-GILEAD-2018-0346782

PATIENT
  Age: 66 Year
  Sex: Male

DRUGS (13)
  1. AMBRISENTAN [Suspect]
     Active Substance: AMBRISENTAN
     Indication: PRODUCT USED FOR UNKNOWN INDICATION
     Dosage: 10 MG, QD
     Route: 065
  2. HUMALOG [Concomitant]
     Active Substance: INSULIN LISPRO
  3. NEPHRO-VITE                        /02375601/ [Concomitant]
  4. ROSUVASTATIN. [Concomitant]
     Active Substance: ROSUVASTATIN
  5. BUMETANIDE. [Concomitant]
     Active Substance: BUMETANIDE
  6. OMEPRAZOLE. [Concomitant]
     Active Substance: OMEPRAZOLE
  7. CYPROHEPTADINE HCL [Concomitant]
     Active Substance: CYPROHEPTADINE HYDROCHLORIDE
  8. LANTUS [Concomitant]
     Active Substance: INSULIN GLARGINE
  9. PREDNISONE. [Concomitant]
     Active Substance: PREDNISONE
  10. ALLOPURINOL. [Concomitant]
     Active Substance: ALLOPURINOL
  11. ASA [Concomitant]
     Active Substance: ASPIRIN
  12. ADCIRCA [Concomitant]
     Active Substance: TADALAFIL
  13. MAGNESIUM OXIDE. [Concomitant]
     Active Substance: MAGNESIUM OXIDE

REACTIONS (3)
  - Heart rate increased [Unknown]
  - Blood pressure decreased [Unknown]
  - Dialysis [Unknown]
